FAERS Safety Report 6492407-6 (Version None)
Quarter: 2009Q4

REPORT INFORMATION
  Report Type: 
  Country: None (occurrence: None)
  Receive Date: 20091214
  Receipt Date: 20091203
  Transmission Date: 20100525
  Serious: Yes (Hospitalization)
  Sender: FDA-Public Use
  Company Number: US-KINGPHARMUSA00001-K200901077

PATIENT
  Age: 83 Year
  Sex: Male

DRUGS (11)
  1. ALTACE [Suspect]
     Indication: HYPERTENSION
     Dosage: 10 MG, QD
     Route: 048
     Dates: start: 20040501, end: 20090406
  2. PANTOZOL [Concomitant]
     Indication: PROPHYLAXIS AGAINST GASTROINTESTINAL ULCER
     Dosage: 40 MG, QD
     Dates: start: 20040501
  3. TAMSULOSIN [Concomitant]
     Indication: BENIGN PROSTATIC HYPERPLASIA
     Dosage: UNK
     Route: 048
  4. TARGIN [Concomitant]
     Indication: PAIN
     Dosage: 1 DF, QD
     Route: 048
     Dates: start: 20080401
  5. DEKRISTOL [Concomitant]
     Indication: SPINAL FRACTURE
     Dosage: 2000 IU, UNK
     Route: 048
  6. PRIMIDONE [Concomitant]
     Indication: PAIN
     Dosage: 250 MG, UNK
     Route: 048
     Dates: start: 20060501
  7. PIRACETAM [Concomitant]
     Indication: SLEEP DISORDER
     Dosage: 2400 MG, UNK
     Dates: start: 20040501
  8. PREDNISOLONE [Concomitant]
     Indication: CHRONIC OBSTRUCTIVE PULMONARY DISEASE
     Dosage: 4 MG, UNK
     Route: 048
  9. TORASEMIDE [Concomitant]
     Indication: CARDIAC FAILURE
     Dosage: 10 MG, UNK
     Route: 048
     Dates: start: 20080401
  10. XIPAMIDE [Concomitant]
     Indication: CARDIAC FAILURE
     Dosage: 40 MG, UNK
     Route: 048
     Dates: start: 20040501
  11. ZOLPIDEM [Concomitant]
     Indication: SLEEP DISORDER
     Dosage: 20 MG, UNK
     Route: 048
     Dates: start: 20040501

REACTIONS (5)
  - ANGIOEDEMA [None]
  - CIRCUMORAL OEDEMA [None]
  - DRUG INTERACTION [None]
  - LIP SWELLING [None]
  - SPINAL FRACTURE [None]
